FAERS Safety Report 19438956 (Version 1)
Quarter: 2021Q2

REPORT INFORMATION
  Report Type: Spontaneous
  Country: RO (occurrence: RO)
  Receive Date: 20210619
  Receipt Date: 20210619
  Transmission Date: 20210717
  Serious: Yes (Hospitalization, Other)
  Sender: FDA-Public Use
  Company Number: RO-MACLEODS PHARMACEUTICALS US LTD-MAC2021031525

PATIENT

DRUGS (4)
  1. GLICLAZIDE [Concomitant]
     Active Substance: GLICLAZIDE
     Indication: TYPE 2 DIABETES MELLITUS
     Dosage: UNK
     Route: 048
  2. EMTRICITABINE/TENOFOVIR DISOPROXIL [Suspect]
     Active Substance: EMTRICITABINE\TENOFOVIR DISOPROXIL
     Indication: HIV INFECTION
     Dosage: UNK
     Route: 065
     Dates: start: 2014, end: 2019
  3. RITONAVIR/ ATAZANAVIR [Suspect]
     Active Substance: ATAZANAVIR\RITONAVIR
     Indication: HIV INFECTION
     Dosage: UNK
     Route: 065
     Dates: start: 2014, end: 2019
  4. METFORMIN [Concomitant]
     Active Substance: METFORMIN HYDROCHLORIDE
     Indication: TYPE 2 DIABETES MELLITUS
     Dosage: UNK
     Route: 048

REACTIONS (9)
  - Fanconi syndrome [Unknown]
  - Normochromic normocytic anaemia [Unknown]
  - Chronic kidney disease [Recovering/Resolving]
  - Nephropathy toxic [Recovering/Resolving]
  - Hyperbilirubinaemia [Unknown]
  - Renal tubular dysfunction [Recovering/Resolving]
  - Osteopenia [Unknown]
  - Condition aggravated [Recovering/Resolving]
  - Cholestasis [Unknown]

NARRATIVE: CASE EVENT DATE: 2019
